FAERS Safety Report 19432660 (Version 3)
Quarter: 2021Q3

REPORT INFORMATION
  Report Type: Report from Study
  Country: US (occurrence: US)
  Receive Date: 20210618
  Receipt Date: 20210907
  Transmission Date: 20211014
  Serious: No
  Sender: FDA-Public Use
  Company Number: NVSC2021US133763

PATIENT
  Sex: Female

DRUGS (2)
  1. COSENTYX [Suspect]
     Active Substance: SECUKINUMAB
     Dosage: 300 MG, Q4W
     Route: 058
  2. COSENTYX [Suspect]
     Active Substance: SECUKINUMAB
     Indication: PSORIASIS
     Dosage: 300 MG, QW, FOR 5 WEEKS
     Route: 058

REACTIONS (5)
  - Arthralgia [Recovering/Resolving]
  - Product dose omission issue [Unknown]
  - Erythema [Recovering/Resolving]
  - Psoriasis [Recovering/Resolving]
  - Upper respiratory tract infection [Unknown]
